FAERS Safety Report 17382349 (Version 1)
Quarter: 2020Q1

REPORT INFORMATION
  Report Type: Spontaneous
  Country: FR (occurrence: FR)
  Receive Date: 20200206
  Receipt Date: 20200206
  Transmission Date: 20200409
  Serious: Yes (Hospitalization)
  Sender: FDA-Public Use
  Company Number: FR-ELI_LILLY_AND_COMPANY-FR202002001309

PATIENT
  Age: 80 Year
  Sex: Male

DRUGS (1)
  1. ERBITUX [Suspect]
     Active Substance: CETUXIMAB
     Indication: NEOPLASM MALIGNANT
     Dosage: 740 MG, UNKNOWN
     Route: 042
     Dates: start: 20190425

REACTIONS (2)
  - Overdose [Recovered/Resolved]
  - Product administration error [Recovered/Resolved]

NARRATIVE: CASE EVENT DATE: 20190430
